FAERS Safety Report 24027132 (Version 1)
Quarter: 2024Q2

REPORT INFORMATION
  Report Type: Spontaneous
  Country: DE (occurrence: DE)
  Receive Date: 20240628
  Receipt Date: 20240628
  Transmission Date: 20240716
  Serious: Yes (Death, Life-Threatening, Hospitalization, Other)
  Sender: FDA-Public Use
  Company Number: DE-BRISTOL-MYERS SQUIBB COMPANY-2024-091861

PATIENT
  Age: 57 Year
  Sex: Male
  Weight: 81 kg

DRUGS (5)
  1. OXALIPLATIN [Suspect]
     Active Substance: OXALIPLATIN
     Indication: Gastric cancer
     Dosage: 170 MILLIGRAM, EVERY 14 DAYS
     Route: 042
     Dates: start: 20240515
  2. OPDIVO [Suspect]
     Active Substance: NIVOLUMAB
     Indication: Gastric cancer
     Dosage: 240 MILLIGRAM, EVERY 14 WEEKS
     Route: 042
     Dates: start: 20240529
  3. FLUOROURACIL [Suspect]
     Active Substance: FLUOROURACIL
     Indication: Gastric cancer
     Dosage: 5200 MILLIGRAM, EVERY 14 DAYS
     Route: 042
     Dates: start: 20240515
  4. GRANISETRON [Concomitant]
     Active Substance: GRANISETRON
     Indication: Prophylaxis
     Dosage: 1 MILLIGRAM, EVERY 2 MONTHS
     Route: 042
     Dates: start: 20240515
  5. DEXAMETHASONE [Concomitant]
     Active Substance: DEXAMETHASONE
     Indication: Prophylaxis
     Dosage: 8 MILLIGRAM, EVERY 2 MONTHS
     Route: 042
     Dates: start: 20240515

REACTIONS (3)
  - Lung disorder [Fatal]
  - Pneumonitis [Fatal]
  - Pneumonia [Unknown]

NARRATIVE: CASE EVENT DATE: 20240604
